FAERS Safety Report 25358038 (Version 1)
Quarter: 2025Q2

REPORT INFORMATION
  Report Type: Spontaneous
  Country: US (occurrence: US)
  Receive Date: 20250526
  Receipt Date: 20250526
  Transmission Date: 20250716
  Serious: No
  Sender: SANOFI AVENTIS
  Company Number: US-SA-2025SA148230

PATIENT
  Sex: Female

DRUGS (11)
  1. DUPIXENT [Suspect]
     Active Substance: DUPILUMAB
     Dosage: 300 MG, QOW
     Route: 058
     Dates: start: 20240530
  2. ALPRAZOLAM [Concomitant]
     Active Substance: ALPRAZOLAM
  3. ATORVASTATIN [Concomitant]
     Active Substance: ATORVASTATIN
  4. CELECOXIB [Concomitant]
     Active Substance: CELECOXIB
  5. CLOBETASOL [Concomitant]
     Active Substance: CLOBETASOL
  6. CYCLOBENZAPRINE [Concomitant]
     Active Substance: CYCLOBENZAPRINE
  7. ESTRADIOL [Concomitant]
     Active Substance: ESTRADIOL
  8. ESTRADIOL [Concomitant]
     Active Substance: ESTRADIOL
  9. TRAMADOL HCL [Concomitant]
     Active Substance: TRAMADOL HYDROCHLORIDE
  10. METOCLOPRAMIDE [Concomitant]
     Active Substance: METOCLOPRAMIDE
  11. ESZOPICLONE [Concomitant]
     Active Substance: ESZOPICLONE

REACTIONS (1)
  - Sleep disorder due to a general medical condition [Unknown]
